FAERS Safety Report 25784831 (Version 1)
Quarter: 2025Q3

REPORT INFORMATION
  Report Type: Spontaneous
  Country: US (occurrence: US)
  Receive Date: 20250910
  Receipt Date: 20250910
  Transmission Date: 20251020
  Serious: No
  Sender: SANDOZ
  Company Number: US-002147023-NVSC2024US018947

PATIENT
  Age: 70 Year
  Sex: Female

DRUGS (4)
  1. EVEROLIMUS [Suspect]
     Active Substance: EVEROLIMUS
     Indication: Product used for unknown indication
     Route: 065
  2. LENVIMA [Suspect]
     Active Substance: LENVATINIB
     Indication: Renal cell carcinoma
     Dosage: 18 MG, QD
     Route: 048
     Dates: start: 20230930
  3. LENVIMA [Suspect]
     Active Substance: LENVATINIB
     Dosage: 8 MG, QD
     Route: 048
  4. ONDANSETRON HYDROCHLORIDE [Suspect]
     Active Substance: ONDANSETRON HYDROCHLORIDE
     Indication: Product used for unknown indication
     Route: 065

REACTIONS (3)
  - Weight decreased [Unknown]
  - Fatigue [Unknown]
  - Dehydration [Unknown]
